FAERS Safety Report 15165004 (Version 13)
Quarter: 2021Q2

REPORT INFORMATION
  Report Type: Report from Study
  Country: AU (occurrence: AU)
  Receive Date: 20180719
  Receipt Date: 20210504
  Transmission Date: 20210716
  Serious: Yes (Hospitalization)
  Sender: FDA-Public Use
  Company Number: PHHY2018AU044246

PATIENT
  Age: 64 Year
  Sex: Female

DRUGS (3)
  1. VALPROATE SODIUM. [Suspect]
     Active Substance: VALPROATE SODIUM
     Indication: EPILEPSY
     Dosage: 900 MG, QMO
     Route: 048
  2. COSENTYX [Suspect]
     Active Substance: SECUKINUMAB
     Dosage: 300 MG, Q2MO
     Route: 058
  3. COSENTYX [Suspect]
     Active Substance: SECUKINUMAB
     Indication: PSORIATIC ARTHROPATHY
     Dosage: 150 MG, QMO
     Route: 058
     Dates: start: 201711

REACTIONS (6)
  - Incorrect dose administered [Unknown]
  - Arthritis [Not Recovered/Not Resolved]
  - Metabolic disorder [Unknown]
  - Lip pain [Unknown]
  - Nausea [Unknown]
  - Lip swelling [Unknown]

NARRATIVE: CASE EVENT DATE: 201802
